FAERS Safety Report 8595339-2 (Version None)
Quarter: 2012Q3

REPORT INFORMATION
  Report Type: 
  Country: None (occurrence: None)
  Receive Date: 20120815
  Receipt Date: 20120813
  Transmission Date: 20120928
  Serious: Yes (Hospitalization, Other)
  Sender: FDA-Public Use
  Company Number: PHEH2012US014624

PATIENT
  Sex: Female

DRUGS (1)
  1. AREDIA [Suspect]

REACTIONS (12)
  - URINARY INCONTINENCE [None]
  - URETHRAL STENOSIS [None]
  - CYSTOCELE [None]
  - VULVAL HAEMATOMA [None]
  - HAEMATURIA [None]
  - PELVIC PROLAPSE [None]
  - VAGINAL HAEMORRHAGE [None]
  - RECTOCELE [None]
  - PELVIC PAIN [None]
  - ARTHRITIS [None]
  - NOCTURIA [None]
  - HEPATITIS [None]
